FAERS Safety Report 6359090-1 (Version None)
Quarter: 2009Q3

REPORT INFORMATION
  Report Type: 
  Country: None (occurrence: None)
  Receive Date: 20090917
  Receipt Date: 20070725
  Transmission Date: 20100115
  Serious: Yes (Other)
  Sender: FDA-Public Use
  Company Number: US-ASTRAZENECA-2007UW06444

PATIENT
  Age: 14033 Day
  Sex: Female
  Weight: 65.8 kg

DRUGS (16)
  1. SEROQUEL [Suspect]
     Indication: DEPRESSION
     Route: 048
     Dates: start: 19980101, end: 20040101
  2. SEROQUEL [Suspect]
     Indication: SLEEP DISORDER
     Route: 048
     Dates: start: 19980101, end: 20040101
  3. SEROQUEL [Suspect]
     Indication: ANXIETY
     Route: 048
     Dates: start: 19980101, end: 20040101
  4. SEROQUEL [Suspect]
     Route: 048
     Dates: start: 20040812, end: 20050113
  5. SEROQUEL [Suspect]
     Route: 048
     Dates: start: 20040812, end: 20050113
  6. SEROQUEL [Suspect]
     Route: 048
     Dates: start: 20040812, end: 20050113
  7. SEROQUEL [Suspect]
     Route: 048
     Dates: start: 20050114, end: 20060201
  8. SEROQUEL [Suspect]
     Route: 048
     Dates: start: 20050114, end: 20060201
  9. SEROQUEL [Suspect]
     Route: 048
     Dates: start: 20050114, end: 20060201
  10. SEROQUEL [Suspect]
     Route: 048
     Dates: start: 20060202, end: 20060713
  11. SEROQUEL [Suspect]
     Route: 048
     Dates: start: 20060202, end: 20060713
  12. SEROQUEL [Suspect]
     Route: 048
     Dates: start: 20060202, end: 20060713
  13. SEROQUEL [Suspect]
     Route: 048
     Dates: start: 20060202
  14. SEROQUEL [Suspect]
     Route: 048
     Dates: start: 20060202
  15. SEROQUEL [Suspect]
     Route: 048
     Dates: start: 20060202
  16. LIBRIUM [Concomitant]
     Dosage: 25 - 100 MG
     Route: 048
     Dates: start: 20021211

REACTIONS (9)
  - BLOOD CHOLESTEROL INCREASED [None]
  - CIRRHOSIS ALCOHOLIC [None]
  - DIABETES MELLITUS [None]
  - GASTROOESOPHAGEAL REFLUX DISEASE [None]
  - HEPATITIS C [None]
  - LIVER DISORDER [None]
  - OBESITY [None]
  - PAIN [None]
  - TYPE 2 DIABETES MELLITUS [None]
